FAERS Safety Report 6992669-2 (Version None)
Quarter: 2010Q3

REPORT INFORMATION
  Report Type: 
  Country: None (occurrence: None)
  Receive Date: 20100916
  Receipt Date: 20100916
  Transmission Date: 20110219
  Serious: Yes (Hospitalization)
  Sender: FDA-Public Use
  Company Number: None

PATIENT
  Age: 64 Year
  Sex: Female
  Weight: 62.5964 kg

DRUGS (2)
  1. ACTONEL [Suspect]
     Indication: OSTEOPENIA
     Dates: start: 20060301, end: 20080301
  2. ACTONEL [Suspect]
     Dates: start: 20080301, end: 20100301

REACTIONS (2)
  - MIDDLE INSOMNIA [None]
  - PALPITATIONS [None]
